FAERS Safety Report 5853954-0 (Version None)
Quarter: 2008Q3

REPORT INFORMATION
  Report Type: 
  Country: None (occurrence: None)
  Receive Date: 20080822
  Receipt Date: 20080819
  Transmission Date: 20090109
  Serious: Yes (Hospitalization, Disabling)
  Sender: FDA-Public Use
  Company Number: B0533625A

PATIENT
  Sex: Male
  Weight: 95.1 kg

DRUGS (8)
  1. PAZOPANIB [Suspect]
     Indication: MALIGNANT GLIOMA
     Dosage: 800MG PER DAY
     Route: 048
     Dates: start: 20080717
  2. LAPATINIB [Suspect]
     Indication: MALIGNANT GLIOMA
     Dosage: 2000MG PER DAY
     Route: 048
     Dates: start: 20080717
  3. DEXAMETHASONE TAB [Suspect]
     Dosage: 8MG TWICE PER DAY
     Route: 048
     Dates: start: 20080704
  4. ORAMORPH SR [Concomitant]
     Indication: HEADACHE
     Dosage: 10MG AS REQUIRED
     Route: 048
     Dates: start: 20080807
  5. VALPROATE SODIUM [Concomitant]
     Indication: EPILEPSY
     Dosage: 600MG TWICE PER DAY
     Route: 048
     Dates: start: 20050501
  6. LAMOTRIGINE [Concomitant]
     Indication: EPILEPSY
     Dosage: 50MG TWICE PER DAY
     Route: 048
     Dates: start: 20050501
  7. PHENYTOIN [Concomitant]
     Indication: EPILEPSY
     Dosage: 25MG PER DAY
     Route: 048
     Dates: start: 20080621
  8. LANSOPRAZOLE [Concomitant]
     Dosage: 30MG PER DAY
     Route: 048
     Dates: start: 20080704

REACTIONS (13)
  - AGGRESSION [None]
  - CONFUSIONAL STATE [None]
  - DEHYDRATION [None]
  - DIARRHOEA [None]
  - ELECTROCARDIOGRAM CHANGE [None]
  - FATIGUE [None]
  - HYPOTENSION [None]
  - LETHARGY [None]
  - PERICARDITIS [None]
  - PYREXIA [None]
  - TACHYCARDIA [None]
  - THROMBOCYTOPENIA [None]
  - TROPONIN INCREASED [None]
